FAERS Safety Report 13266790 (Version 2)
Quarter: 2017Q1

REPORT INFORMATION
  Report Type: Spontaneous
  Country: GB (occurrence: GB)
  Receive Date: 20170224
  Receipt Date: 20170309
  Transmission Date: 20170428
  Serious: Yes (Hospitalization, Other)
  Sender: FDA-Public Use
  Company Number: GB-AMGEN-GBRSP2017027016

PATIENT
  Sex: Female

DRUGS (1)
  1. ARANESP [Suspect]
     Active Substance: DARBEPOETIN ALFA
     Indication: PRODUCT USED FOR UNKNOWN INDICATION
     Dosage: 40 MUG  (0.4 ML), UNK
     Route: 065

REACTIONS (5)
  - Diabetes mellitus [Unknown]
  - Pneumonia [Unknown]
  - Blood pressure abnormal [Unknown]
  - Back disorder [Unknown]
  - Renal disorder [Unknown]
